FAERS Safety Report 12618081 (Version 1)
Quarter: 2016Q3

REPORT INFORMATION
  Report Type: Spontaneous
  Country: US (occurrence: None)
  Receive Date: 20160802
  Receipt Date: 20160802
  Transmission Date: 20161109
  Serious: Yes (Other)
  Sender: FDA-Public Use
  Company Number: None

PATIENT
  Age: 56 Year

DRUGS (8)
  1. CORTICOSTEROID [Suspect]
     Active Substance: CORTICOSTEROID NOS
  2. LEXIVA [Concomitant]
     Active Substance: FOSAMPRENAVIR CALCIUM
  3. MEDICAL CANNABIS [Suspect]
     Active Substance: CANNABIS SATIVA SUBSP. INDICA TOP
  4. AZT [Suspect]
     Active Substance: ZIDOVUDINE
     Indication: HIV INFECTION
  5. OMEPRAZOLE. [Concomitant]
     Active Substance: OMEPRAZOLE
  6. AZT [Suspect]
     Active Substance: ZIDOVUDINE
     Indication: ORTHOPAEDIC EXAMINATION ABNORMAL
  7. AZT [Suspect]
     Active Substance: ZIDOVUDINE
     Indication: POST-TRAUMATIC STRESS DISORDER
  8. COMBIVIR [Concomitant]
     Active Substance: LAMIVUDINE\ZIDOVUDINE

REACTIONS (1)
  - Penis disorder [None]

NARRATIVE: CASE EVENT DATE: 20160728
